FAERS Safety Report 4909370-9 (Version None)
Quarter: 2006Q1

REPORT INFORMATION
  Report Type: 
  Country: None (occurrence: None)
  Receive Date: 20060213
  Receipt Date: 20060202
  Transmission Date: 20060701
  Serious: Yes (Death)
  Sender: FDA-Public Use
  Company Number: CH-GLAXOSMITHKLINE-B0410503A

PATIENT
  Age: 56 Year
  Sex: Female

DRUGS (14)
  1. PURINETHOL [Suspect]
     Indication: AUTOIMMUNE THYROIDITIS
     Dosage: 100MG PER DAY
     Route: 048
  2. NEXIUM [Suspect]
     Indication: GASTRITIS
     Dosage: 40MG PER DAY
     Route: 048
  3. SALAZOPYRIN [Suspect]
  4. TOREM [Suspect]
     Indication: CROHN'S DISEASE
     Dosage: 5MG THREE TIMES PER WEEK
  5. SELIPRAN [Suspect]
     Dosage: 20MG PER DAY
     Route: 048
  6. GLUCOPHAGE [Suspect]
     Route: 048
  7. CYANOCOBALAMIN [Concomitant]
     Route: 058
  8. BENERVA [Concomitant]
     Route: 048
  9. KONAKION [Concomitant]
     Dosage: 10MG PER DAY
     Route: 048
  10. NOROXIN [Concomitant]
     Route: 048
  11. BACTRIM [Concomitant]
     Indication: BRONCHIECTASIS
  12. BELOC [Concomitant]
     Indication: ESSENTIAL HYPERTENSION
  13. ZYRTEC [Concomitant]
     Route: 048
  14. SPIRIVA [Concomitant]
     Indication: CHRONIC OBSTRUCTIVE PULMONARY DISEASE

REACTIONS (3)
  - HEPATIC TRAUMA [None]
  - LACTIC ACIDOSIS [None]
  - PANCREATITIS ACUTE [None]
